FAERS Safety Report 8580906-2 (Version None)
Quarter: 2012Q3

REPORT INFORMATION
  Report Type: 
  Country: None (occurrence: None)
  Receive Date: 20120727
  Receipt Date: 20120716
  Transmission Date: 20120928
  Serious: Yes (Other)
  Sender: FDA-Public Use
  Company Number: 2012SA050706

PATIENT

DRUGS (1)
  1. MENTHOL / UNKNOWN / UNKNOWN [Suspect]
     Indication: PRODUCT USED FOR UNKNOWN INDICATION
     Dosage: ONCE; TOPICAL
     Route: 061
     Dates: start: 20120712, end: 20120712

REACTIONS (1)
  - APPLICATION SITE BURN [None]
